FAERS Safety Report 7441639-9 (Version None)
Quarter: 2011Q2

REPORT INFORMATION
  Report Type: 
  Country: None (occurrence: None)
  Receive Date: 20110428
  Receipt Date: 20110421
  Transmission Date: 20111010
  Serious: Yes (Hospitalization, Other)
  Sender: FDA-Public Use
  Company Number: US-AMGEN-USASP2011016968

PATIENT
  Age: 53 Year
  Sex: Female
  Weight: 63.039 kg

DRUGS (1)
  1. PROLIA [Suspect]
     Indication: OSTEOPOROSIS POSTMENOPAUSAL
     Dosage: 60 MG, Q6MO
     Route: 058
     Dates: start: 20110310, end: 20110301

REACTIONS (6)
  - INTESTINAL OBSTRUCTION [None]
  - ARTHRALGIA [None]
  - RETCHING [None]
  - INJECTION SITE PAIN [None]
  - DIARRHOEA [None]
  - ABDOMINAL PAIN [None]
